FAERS Safety Report 7277842-0 (Version None)
Quarter: 2011Q1

REPORT INFORMATION
  Report Type: 
  Country: None (occurrence: None)
  Receive Date: 20110207
  Receipt Date: 20110126
  Transmission Date: 20110831
  Serious: Yes (Other)
  Sender: FDA-Public Use
  Company Number: GB-SANOFI-AVENTIS-2011SA005707

PATIENT
  Age: 83 Year
  Sex: Female
  Weight: 70 kg

DRUGS (11)
  1. GLUCOSAMINE [Concomitant]
  2. ASPIRIN [Concomitant]
     Indication: ATRIAL FIBRILLATION
     Route: 048
     Dates: start: 20100729, end: 20110103
  3. GARLIC [Concomitant]
  4. GINGER [Concomitant]
  5. ALBUTEROL [Concomitant]
     Indication: CHRONIC OBSTRUCTIVE PULMONARY DISEASE
     Route: 055
  6. SERETIDE [Concomitant]
     Indication: CHRONIC OBSTRUCTIVE PULMONARY DISEASE
     Route: 055
  7. MULTAQ [Suspect]
     Indication: ATRIAL FIBRILLATION
     Route: 048
     Dates: start: 20101123, end: 20101203
  8. OMEPRAZOLE [Concomitant]
     Route: 048
     Dates: start: 20100729, end: 20110103
  9. MULTAQ [Suspect]
     Route: 048
     Dates: start: 20101123, end: 20101203
  10. ADCAL-D3 [Concomitant]
     Indication: OSTEOPOROSIS
     Route: 048
     Dates: start: 20040101
  11. ALENDRONIC ACID [Concomitant]
     Route: 048
     Dates: start: 20040101

REACTIONS (2)
  - DYSPNOEA [None]
  - PULMONARY EMBOLISM [None]
